FAERS Safety Report 7933402-7 (Version None)
Quarter: 2011Q4

REPORT INFORMATION
  Report Type: 
  Country: None (occurrence: None)
  Receive Date: 20111122
  Receipt Date: 20111108
  Transmission Date: 20120403
  Serious: Yes (Other)
  Sender: FDA-Public Use
  Company Number: IT-CELGENEUS-083-20785-11111099

PATIENT
  Age: 70 Year

DRUGS (1)
  1. THALIDOMIDE [Suspect]
     Indication: MYELODYSPLASTIC SYNDROME
     Route: 048

REACTIONS (6)
  - CARDIOVASCULAR DISORDER [None]
  - RESPIRATORY DISORDER [None]
  - BLOOD PRODUCT TRANSFUSION DEPENDENT [None]
  - RENAL FAILURE [None]
  - DIABETES MELLITUS [None]
  - LIVER DISORDER [None]
